FAERS Safety Report 7331743-8 (Version None)
Quarter: 2011Q1

REPORT INFORMATION
  Report Type: 
  Country: None (occurrence: None)
  Receive Date: 20110304
  Receipt Date: 20110222
  Transmission Date: 20110831
  Serious: Yes (Other)
  Sender: FDA-Public Use
  Company Number: GB-SANOFI-AVENTIS-2011SA011658

PATIENT
  Age: 73 Year
  Sex: Male

DRUGS (7)
  1. OLMETEC [Concomitant]
  2. GLICLAZIDE [Concomitant]
  3. MULTAQ [Suspect]
     Indication: ATRIAL FIBRILLATION
     Route: 048
     Dates: start: 20110210
  4. METFORMIN [Concomitant]
  5. WARFARIN [Concomitant]
  6. VERAPAMIL [Concomitant]
  7. INSULIN [Concomitant]
     Dosage: DOSE:15 UNIT(S)

REACTIONS (1)
  - HYPERTENSION [None]
